FAERS Safety Report 6834218-5 (Version None)
Quarter: 2010Q3

REPORT INFORMATION
  Report Type: 
  Country: None (occurrence: None)
  Receive Date: 20100712
  Receipt Date: 20070418
  Transmission Date: 20110219
  Serious: No
  Sender: FDA-Public Use
  Company Number: US-PFIZER INC-2007031963

PATIENT
  Sex: Female
  Weight: 78.181 kg

DRUGS (8)
  1. CHANTIX [Suspect]
     Indication: SMOKING CESSATION THERAPY
     Dates: start: 20060101
  2. EFFEXOR [Concomitant]
  3. MONTELUKAST SODIUM [Concomitant]
  4. NASONEX [Concomitant]
  5. ALLEGRA [Concomitant]
  6. NEXIUM [Concomitant]
  7. TRAZODONE HYDROCHLORIDE [Concomitant]
     Indication: INSOMNIA
  8. DIAZEPAM [Concomitant]
     Indication: SPINAL OSTEOARTHRITIS

REACTIONS (4)
  - FLATULENCE [None]
  - LARYNGITIS [None]
  - NAUSEA [None]
  - SINUSITIS [None]
